FAERS Safety Report 6738443-3 (Version None)
Quarter: 2010Q2

REPORT INFORMATION
  Report Type: 
  Country: None (occurrence: None)
  Receive Date: 20100524
  Receipt Date: 20100512
  Transmission Date: 20101027
  Serious: Yes (Hospitalization)
  Sender: FDA-Public Use
  Company Number: DE-ELI_LILLY_AND_COMPANY-DE201005003483

PATIENT
  Age: 72 Year
  Sex: Male

DRUGS (3)
  1. ALIMTA [Suspect]
     Indication: NON-SMALL CELL LUNG CANCER
     Dosage: 500 MG/M2, UNK
     Route: 042
     Dates: start: 20100428, end: 20100428
  2. VITAMIN B-12 [Concomitant]
  3. FOLIC ACID [Concomitant]

REACTIONS (2)
  - C-REACTIVE PROTEIN INCREASED [None]
  - RASH [None]
